FAERS Safety Report 19894907 (Version 2)
Quarter: 2021Q4

REPORT INFORMATION
  Report Type: Report from Study
  Country: AU (occurrence: AU)
  Receive Date: 20210928
  Receipt Date: 20211223
  Transmission Date: 20220303
  Serious: Yes (Other)
  Sender: FDA-Public Use
  Company Number: AU-BAXTER-2021BAX030720

PATIENT
  Sex: Female

DRUGS (1)
  1. DOXIL [Suspect]
     Active Substance: DOXORUBICIN HYDROCHLORIDE
     Indication: Dedifferentiated liposarcoma
     Dosage: 2.1429 MG
     Route: 065
     Dates: end: 20211215

REACTIONS (1)
  - Disease progression [Unknown]
